FAERS Safety Report 9440950 (Version 3)
Quarter: 2013Q4

REPORT INFORMATION
  Report Type: Spontaneous
  Country: FR (occurrence: FR)
  Receive Date: 20130805
  Receipt Date: 20131023
  Transmission Date: 20140711
  Serious: Yes (Hospitalization)
  Sender: FDA-Public Use
  Company Number: FR-ALEXION PHARMACEUTICALS INC.-A201301676

PATIENT
  Age: 36 Year
  Sex: Male

DRUGS (5)
  1. SOLIRIS 300MG [Suspect]
     Indication: HAEMOLYTIC URAEMIC SYNDROME
     Dosage: UNK
     Route: 042
     Dates: start: 201206
  2. SOLIRIS 300MG [Suspect]
     Dosage: 1200 MG, BIMONTHLY
     Route: 042
     Dates: start: 201207
  3. EUPRESSYL [Concomitant]
     Dosage: 60 MG, UNK
     Route: 048
  4. AMLOR [Concomitant]
     Dosage: 10 MG, UNK
     Route: 048
  5. TENORMINE [Concomitant]
     Dosage: 100 MG, UNK
     Route: 048

REACTIONS (2)
  - Haemolytic uraemic syndrome [Recovering/Resolving]
  - Haematoma [Recovered/Resolved with Sequelae]
